FAERS Safety Report 18932205 (Version 1)
Quarter: 2021Q1

REPORT INFORMATION
  Report Type: Spontaneous
  Country: US (occurrence: US)
  Receive Date: 20210223
  Receipt Date: 20210223
  Transmission Date: 20210420
  Serious: Yes (Life-Threatening, Hospitalization, Other)
  Sender: FDA-Public Use
  Company Number: US-009507513-2102USA006799

PATIENT
  Age: 84 Year
  Sex: Female

DRUGS (3)
  1. ALTEPLASE. [Interacting]
     Active Substance: ALTEPLASE
     Indication: CEREBRAL INFARCTION
     Dosage: 0.9 MG/KG; 10% AS A BOLUS
     Route: 040
  2. PRINIVIL [Suspect]
     Active Substance: LISINOPRIL
     Indication: HYPERTENSION
     Dosage: UNK
     Route: 048
  3. ALTEPLASE. [Interacting]
     Active Substance: ALTEPLASE
     Dosage: 0.9 MG/KG;  INTRAVENOUS INFUSION OF THE REMAINING DOSE
     Route: 041

REACTIONS (2)
  - Angioedema [Recovering/Resolving]
  - Drug interaction [Unknown]
